FAERS Safety Report 5420726-0 (Version None)
Quarter: 2007Q3

REPORT INFORMATION
  Report Type: 
  Country: None (occurrence: None)
  Receive Date: 20070821
  Receipt Date: 20070809
  Transmission Date: 20080115
  Serious: Yes (Death)
  Sender: FDA-Public Use
  Company Number: JP-ALLERGAN-0709029US

PATIENT
  Sex: Male

DRUGS (1)
  1. BOTULINUM TOXIN TYPE A - GENERAL [Suspect]
     Indication: TORTICOLLIS
     Dosage: 25 UNITS, SINGLE
     Route: 030
     Dates: start: 20050113, end: 20050113

REACTIONS (2)
  - PYREXIA [None]
  - SUDDEN DEATH [None]
